FAERS Safety Report 6598862-5 (Version None)
Quarter: 2010Q1

REPORT INFORMATION
  Report Type: 
  Country: None (occurrence: None)
  Receive Date: 20100224
  Receipt Date: 20100211
  Transmission Date: 20100710
  Serious: No
  Sender: FDA-Public Use
  Company Number: US-B.I. PHARMACEUTICALS,INC./RIDGEFIELD-2010-BP-01636BP

PATIENT
  Sex: Female

DRUGS (7)
  1. MIRAPEX [Suspect]
     Indication: RESTLESS LEGS SYNDROME
     Dosage: 0.25 MG
     Route: 048
     Dates: start: 20100201
  2. ZOCOR [Concomitant]
     Indication: BLOOD CHOLESTEROL INCREASED
  3. ATENOLOL [Concomitant]
     Indication: PALPITATIONS
  4. WELLBUTRIN [Concomitant]
     Indication: FIBROMYALGIA
  5. CLONAZEPAM [Concomitant]
     Indication: FIBROMYALGIA
  6. SYNTHROID [Concomitant]
     Indication: HYPOTHYROIDISM
  7. ZANAFLEX [Concomitant]
     Indication: FIBROMYALGIA

REACTIONS (5)
  - EYELID OEDEMA [None]
  - FOREIGN BODY SENSATION IN EYES [None]
  - NASAL CONGESTION [None]
  - NASAL DRYNESS [None]
  - OCULAR HYPERAEMIA [None]
